FAERS Safety Report 18336338 (Version 1)
Quarter: 2020Q4

REPORT INFORMATION
  Report Type: Spontaneous
  Country: DE (occurrence: DE)
  Receive Date: 20201001
  Receipt Date: 20201001
  Transmission Date: 20210113
  Serious: Yes (Life-Threatening, Hospitalization)
  Sender: FDA-Public Use
  Company Number: DE-TEVA-2020-DE-1831956

PATIENT
  Age: 75 Year
  Sex: Female

DRUGS (5)
  1. CANDESARTAN. [Concomitant]
     Active Substance: CANDESARTAN
     Dosage: 4 MILLIGRAM DAILY;  0-1-0-0
  2. BIPERIDEN [Concomitant]
     Active Substance: BIPERIDEN
     Dosage: 6 MILLIGRAM DAILY;  1-1-1-0
  3. BISOPROLOL [Suspect]
     Active Substance: BISOPROLOL
     Dosage: 2.5 MILLIGRAM DAILY;  1-0-0-0
  4. PERAZIN [Suspect]
     Active Substance: PERAZINE
     Dosage: 300 MILLIGRAM DAILY; 1-1-1-0
  5. FUROSEMID [Concomitant]
     Active Substance: FUROSEMIDE
     Dosage: 20 MILLIGRAM DAILY;  1-0-0-0

REACTIONS (5)
  - Constipation [Unknown]
  - Fall [Unknown]
  - Musculoskeletal pain [Unknown]
  - Condition aggravated [Unknown]
  - General physical health deterioration [Unknown]
